FAERS Safety Report 15457260 (Version 3)
Quarter: 2018Q4

REPORT INFORMATION
  Report Type: Spontaneous
  Country: US (occurrence: US)
  Receive Date: 20181002
  Receipt Date: 20181029
  Transmission Date: 20190204
  Serious: No
  Sender: FDA-Public Use
  Company Number: US-MITSUBISHI TANABE PHARMA CORPORATION-MPE2018-0024078

PATIENT
  Sex: Female

DRUGS (1)
  1. RADICAVA [Suspect]
     Active Substance: EDARAVONE
     Indication: UPPER MOTOR NEURONE LESION
     Route: 042

REACTIONS (4)
  - Drug ineffective [Recovered/Resolved]
  - Rash [Recovered/Resolved]
  - Disease progression [Unknown]
  - Condition aggravated [Recovering/Resolving]
